FAERS Safety Report 9357761 (Version 5)
Quarter: 2016Q1

REPORT INFORMATION
  Report Type: Report from Study
  Country: CN (occurrence: CN)
  Receive Date: 20130620
  Receipt Date: 20160224
  Transmission Date: 20160526
  Serious: Yes (Hospitalization, Other)
  Sender: FDA-Public Use
  Company Number: CN-ROCHE-1236586

PATIENT
  Age: 50 Year
  Sex: Female
  Weight: 59 kg

DRUGS (23)
  1. TRASTUZUMAB [Suspect]
     Active Substance: TRASTUZUMAB
     Indication: HER-2 POSITIVE BREAST CANCER
     Dosage: LOADING DOSE IN CYCLE 1 ONLY AS PER PROTOCOL
     Route: 042
     Dates: start: 20130412
  2. MECOBALAMINE [Concomitant]
     Route: 065
     Dates: start: 20130610, end: 20130619
  3. PERTUZUMAB [Suspect]
     Active Substance: PERTUZUMAB
     Dosage: MOST RECENT DOSE PRIOR TO SAE: 24/MAY/2013
     Route: 042
     Dates: end: 20130614
  4. TRASTUZUMAB [Suspect]
     Active Substance: TRASTUZUMAB
     Dosage: MAINTENANCE DOSE, LAST DOSE PRIOR TO SAE ON 24/MAY/2013.
     Route: 042
     Dates: end: 20130614
  5. CARBOPLATIN. [Suspect]
     Active Substance: CARBOPLATIN
     Indication: HER-2 POSITIVE BREAST CANCER
     Route: 042
  6. CARBOPLATIN. [Suspect]
     Active Substance: CARBOPLATIN
     Dosage: DOSE AUC 6. DOSE FORM AND FREQUENCY AS PER PROTOCOL.
     Route: 042
     Dates: start: 20130412
  7. DOCETAXEL. [Suspect]
     Active Substance: DOCETAXEL
     Indication: HER-2 POSITIVE BREAST CANCER
     Dosage: LAST DOSE PRIOR TO SAE ON 24/MAY/2013.
     Route: 042
     Dates: start: 20130412, end: 20130614
  8. POTASSIUM CHLORIDE. [Concomitant]
     Active Substance: POTASSIUM CHLORIDE
     Route: 065
     Dates: start: 20130812, end: 20130814
  9. CARBOPLATIN. [Suspect]
     Active Substance: CARBOPLATIN
     Route: 042
     Dates: start: 20130602
  10. CEFOPERAZONE SODIUM/SULBACTAM SODIUM [Concomitant]
     Active Substance: CEFOPERAZONE SODIUM\SULBACTAM SODIUM
     Route: 065
     Dates: start: 20130611, end: 20130618
  11. TRASTUZUMAB [Suspect]
     Active Substance: TRASTUZUMAB
     Dosage: MAINTENANCE DOSE, LAST DOSE PRIOR TO SAE ON 24/MAY/2013.
     Route: 042
     Dates: start: 20130702
  12. CARBOPLATIN. [Suspect]
     Active Substance: CARBOPLATIN
     Dosage: THERAPY STOPPED ON 14/AUG/2013 AND RESTARTED ON 23/AUG/2013.
     Route: 042
     Dates: start: 20130702
  13. DOCETAXEL. [Suspect]
     Active Substance: DOCETAXEL
     Dosage: THERAPY STOPPED ON 14/AUG/2013 AND RESTARTED ON 23/AUG/2013.
     Route: 042
     Dates: start: 20130702
  14. CEFATHIAMIDINE [Concomitant]
     Active Substance: CEFTRIAXONE SODIUM
     Route: 065
     Dates: start: 20130813, end: 20130818
  15. DOCETAXEL. [Suspect]
     Active Substance: DOCETAXEL
     Dosage: LAST DOSE PRIOR TO SAE ON 24/MAY/2013.
     Route: 042
     Dates: start: 20130602
  16. GLYCYRRHIZIN [Concomitant]
     Active Substance: GLYCYRRHIZIN
     Route: 065
     Dates: start: 20130822, end: 20130822
  17. POTASSIUM CHLORIDE. [Concomitant]
     Active Substance: POTASSIUM CHLORIDE
     Route: 065
     Dates: start: 20130611, end: 20130613
  18. SODIUM BICARBONATE. [Concomitant]
     Active Substance: SODIUM BICARBONATE
     Route: 065
     Dates: start: 20130610, end: 20130610
  19. PERTUZUMAB [Suspect]
     Active Substance: PERTUZUMAB
     Indication: HER-2 POSITIVE BREAST CANCER
     Route: 042
     Dates: start: 20130412
  20. PERTUZUMAB [Suspect]
     Active Substance: PERTUZUMAB
     Route: 042
     Dates: start: 20130702
  21. YIXUESHENG CAPSULE [Concomitant]
     Route: 065
     Dates: start: 20130615, end: 20131209
  22. PENTOXYVERINE CITRATE [Concomitant]
     Active Substance: PENTOXYVERINE CITRATE
     Route: 065
     Dates: start: 20130610, end: 20130619
  23. VITAMIN B6 [Concomitant]
     Active Substance: PYRIDOXINE HYDROCHLORIDE
     Route: 065
     Dates: start: 20130610, end: 20130619

REACTIONS (1)
  - Bone marrow failure [Recovered/Resolved]

NARRATIVE: CASE EVENT DATE: 20130604
